FAERS Safety Report 6557775-5 (Version None)
Quarter: 2010Q1

REPORT INFORMATION
  Report Type: 
  Country: None (occurrence: None)
  Receive Date: 20100129
  Receipt Date: 20100126
  Transmission Date: 20100710
  Serious: Yes (Death, Life-Threatening, Disabling, Other)
  Sender: FDA-Public Use
  Company Number: PHEH2009US16688

PATIENT
  Sex: Male
  Weight: 76.19 kg

DRUGS (8)
  1. EXJADE [Suspect]
     Indication: MYELOID METAPLASIA
     Dosage: 500 MG, BID
     Route: 048
     Dates: start: 20080509, end: 20090930
  2. EXJADE [Suspect]
     Indication: IRON OVERLOAD
  3. LORTAB [Concomitant]
     Dosage: 1-2 DF, PRN
     Route: 048
     Dates: start: 20091119, end: 20091206
  4. METOPROLOL [Concomitant]
     Dosage: 100 MG, BID
     Dates: start: 20070601, end: 20091206
  5. PRILOSEC [Concomitant]
     Dosage: 20 MG, DAILY
     Dates: start: 20080201
  6. SULFASALAZINE [Concomitant]
     Dosage: 500 MG, BID
     Dates: start: 20070601, end: 20091206
  7. PROSCAR [Concomitant]
     Dosage: 5 MG, QD
     Dates: start: 20070601, end: 20091206
  8. CIPRO [Concomitant]
     Dosage: 250 MG, BID
     Dates: start: 20070601, end: 20091206

REACTIONS (14)
  - ACUTE MYELOID LEUKAEMIA [None]
  - ANAEMIA [None]
  - CHILLS [None]
  - CONCOMITANT DISEASE PROGRESSION [None]
  - CONJUNCTIVAL HAEMORRHAGE [None]
  - COUGH [None]
  - DYSPNOEA [None]
  - ECCHYMOSIS [None]
  - FATIGUE [None]
  - PAIN [None]
  - PYREXIA [None]
  - TERMINAL STATE [None]
  - THROMBOCYTOPENIA [None]
  - WHITE BLOOD CELL COUNT INCREASED [None]
